FAERS Safety Report 8189757-4 (Version None)
Quarter: 2012Q1

REPORT INFORMATION
  Report Type: 
  Country: None (occurrence: None)
  Receive Date: 20120307
  Receipt Date: 20120228
  Transmission Date: 20120608
  Serious: Yes (Hospitalization)
  Sender: FDA-Public Use
  Company Number: US-BAYER-2012-021186

PATIENT
  Age: 34 Year
  Sex: Female
  Weight: 108.39 kg

DRUGS (3)
  1. YAZ [Suspect]
     Dosage: UNK
     Route: 048
     Dates: start: 20080521, end: 20090106
  2. IBUPROFEN (ADVIL) [Concomitant]
  3. YASMIN [Suspect]
     Dosage: UNK
     Route: 048
     Dates: start: 20030331, end: 20080303

REACTIONS (6)
  - PULMONARY EMBOLISM [None]
  - GAIT DISTURBANCE [None]
  - DEEP VEIN THROMBOSIS [None]
  - FEAR [None]
  - PAIN IN EXTREMITY [None]
  - DYSPNOEA [None]
